FAERS Safety Report 18589573 (Version 2)
Quarter: 2021Q1

REPORT INFORMATION
  Report Type: Spontaneous
  Country: DE (occurrence: DE)
  Receive Date: 20201208
  Receipt Date: 20210202
  Transmission Date: 20210419
  Serious: Yes (Life-Threatening, Hospitalization, Other)
  Sender: FDA-Public Use
  Company Number: DE-TEVA-2020-DE-1855279

PATIENT
  Age: 71 Year
  Sex: Female
  Weight: 70 kg

DRUGS (7)
  1. CIPROFLOXACIN ABZ 250 MG FILMTABLETTEN [Suspect]
     Active Substance: CIPROFLOXACIN
     Indication: URINARY TRACT INFECTION
     Dosage: 500 MILLIGRAM DAILY; 1?0?1
     Dates: start: 20201102, end: 20201102
  2. CIPROFLOXACIN ABZ 250 MG FILMTABLETTEN [Suspect]
     Active Substance: CIPROFLOXACIN
     Dosage: 250 MILLIGRAM DAILY; 0?0?1
     Route: 048
     Dates: start: 20201101, end: 20201101
  3. IBUFLAM 600MG LICHTENSTEIN [Concomitant]
     Active Substance: IBUPROFEN
     Indication: ARTHROPATHY
     Dosage: 1?0?1 18.09.2020 GRADUALLY STARTING IN THE 3RD WEEK, FIRST 1?0?0 PER DAY, THEN EVERY 2ND DAY 1?0?0,
     Route: 048
     Dates: start: 20200918
  4. IBUFLAM 600MG LICHTENSTEIN [Concomitant]
     Active Substance: IBUPROFEN
     Indication: HIP ARTHROPLASTY
     Dosage: 18.09.2020 GRADUALLY STARTING IN THE 3RD WEEK, INITIALLY 1?0?0 PER DAY, THEN EVERY 2ND DAY 1?0?0, TH
     Route: 048
     Dates: start: 202010
  5. CIPROFLOXACIN ABZ 250 MG FILMTABLETTEN [Suspect]
     Active Substance: CIPROFLOXACIN
     Dosage: 250 MILLIGRAM DAILY; 1?0?0 THERAPY CANCELED
     Dates: start: 20201103, end: 20201103
  6. IBUFLAM 600MG LICHTENSTEIN [Concomitant]
     Active Substance: IBUPROFEN
     Indication: ORTHOPAEDIC PROCEDURE
     Dosage: 18.09.2020 GRADUALLY STARTING IN THE 3RD WEEK, INITIALLY 1?0?0 PER DAY, THEN EVERY 2ND DAY 1?0?0, TH
     Route: 048
     Dates: start: 202010, end: 20201030
  7. IBUFLAM 600MG LICHTENSTEIN [Concomitant]
     Active Substance: IBUPROFEN
     Dosage: 1?0?0 PER DAY 18.09.2020 GRADUALLY STARTING FROM THE 3RD WEEK, FIRST 1?0?0 PER DAY, THEN EVERY 2ND D
     Dates: start: 202010

REACTIONS (4)
  - Hepatitis toxic [Recovered/Resolved]
  - Acute hepatic failure [Recovered/Resolved]
  - Hepatitis cholestatic [Recovered/Resolved]
  - Yellow skin [Unknown]

NARRATIVE: CASE EVENT DATE: 20201102
